FAERS Safety Report 20181676 (Version 2)
Quarter: 2021Q4

REPORT INFORMATION
  Report Type: Spontaneous
  Country: US (occurrence: US)
  Receive Date: 20211214
  Receipt Date: 20211216
  Transmission Date: 20220303
  Serious: Yes (Death, Hospitalization, Other)
  Sender: FDA-Public Use
  Company Number: US-GILEAD-2021-0559809

PATIENT
  Age: 80 Year
  Sex: Male

DRUGS (2)
  1. VEKLURY [Suspect]
     Active Substance: REMDESIVIR
     Indication: COVID-19
     Dosage: UNK
     Route: 065
     Dates: start: 20211121
  2. PLAVIX [Concomitant]
     Active Substance: CLOPIDOGREL BISULFATE
     Dates: end: 20211127

REACTIONS (4)
  - Dyspnoea [Fatal]
  - Thrombosis [Unknown]
  - Recalled product administered [Recovered/Resolved]
  - Recalled product [Recovered/Resolved]

NARRATIVE: CASE EVENT DATE: 20211121
